FAERS Safety Report 6016806-1 (Version None)
Quarter: 2008Q4

REPORT INFORMATION
  Report Type: 
  Country: None (occurrence: None)
  Receive Date: 20081222
  Receipt Date: 20081215
  Transmission Date: 20090506
  Serious: Yes (Hospitalization)
  Sender: FDA-Public Use
  Company Number: US-ABBOTT-08P-163-0489088-00

PATIENT
  Sex: Female
  Weight: 71.732 kg

DRUGS (3)
  1. HUMIRA [Suspect]
     Indication: PSORIATIC ARTHROPATHY
     Route: 058
     Dates: start: 20080330, end: 20081120
  2. HUMIRA [Suspect]
     Indication: PSORIASIS
     Dates: start: 20081127
  3. OINTMENT [Concomitant]
     Indication: PSORIASIS
     Route: 061

REACTIONS (7)
  - ACNE [None]
  - ERYTHEMA [None]
  - INFECTION [None]
  - PAIN [None]
  - PYREXIA [None]
  - STAPHYLOCOCCAL INFECTION [None]
  - SWELLING FACE [None]
